FAERS Safety Report 5530613-5 (Version None)
Quarter: 2007Q4

REPORT INFORMATION
  Report Type: 
  Country: None (occurrence: None)
  Receive Date: 20071130
  Receipt Date: 20071127
  Transmission Date: 20080405
  Serious: Yes (Hospitalization)
  Sender: FDA-Public Use
  Company Number: A0679209A

PATIENT
  Age: 2 Year
  Sex: Female

DRUGS (2)
  1. LAMICTAL [Suspect]
     Indication: ILL-DEFINED DISORDER
     Dosage: 100MG SINGLE DOSE
     Route: 048
     Dates: start: 20070901, end: 20070901
  2. LUPRON [Concomitant]

REACTIONS (1)
  - OVERDOSE [None]
